FAERS Safety Report 14999076 (Version 1)
Quarter: 2018Q2

REPORT INFORMATION
  Report Type: Spontaneous
  Country: US (occurrence: US)
  Receive Date: 20180612
  Receipt Date: 20180612
  Transmission Date: 20180711
  Serious: No
  Sender: FDA-Public Use
  Company Number: US-TEVA-2018-US-902588

PATIENT
  Age: 68 Year
  Sex: Male

DRUGS (1)
  1. NUVIGIL [Suspect]
     Active Substance: ARMODAFINIL
     Indication: SLEEP APNOEA SYNDROME
     Dosage: 200 MILLIGRAM DAILY;

REACTIONS (5)
  - Adverse event [Unknown]
  - Feeling abnormal [Unknown]
  - Intentional product misuse [Unknown]
  - Wrong technique in product usage process [Unknown]
  - Somnambulism [Unknown]
